FAERS Safety Report 10469145 (Version 1)
Quarter: 2014Q3

REPORT INFORMATION
  Report Type: Spontaneous
  Country: US (occurrence: None)
  Receive Date: 20140922
  Receipt Date: 20140922
  Transmission Date: 20150326
  Serious: Yes (Death)
  Sender: FDA-Public Use
  Company Number: None

PATIENT
  Age: 53 Year
  Sex: Male
  Weight: 104 kg

DRUGS (5)
  1. RIVAROXABAN [Suspect]
     Active Substance: RIVAROXABAN
     Indication: HYPERCOAGULATION
     Dosage: 15 MG/ 42?BID?ORAL
     Route: 048
  2. BUPROPION [Concomitant]
     Active Substance: BUPROPION
  3. RIVAROXABAN [Concomitant]
     Active Substance: RIVAROXABAN
  4. RIVAROXABAN [Suspect]
     Active Substance: RIVAROXABAN
     Indication: PULMONARY EMBOLISM
     Dosage: 15 MG/ 42?BID?ORAL
     Route: 048
  5. PRAVASTATIN [Concomitant]
     Active Substance: PRAVASTATIN\PRAVASTATIN SODIUM

REACTIONS (2)
  - Pulmonary embolism [None]
  - Cardio-respiratory arrest [None]

NARRATIVE: CASE EVENT DATE: 20140827
